FAERS Safety Report 12691718 (Version 1)
Quarter: 2016Q3

REPORT INFORMATION
  Report Type: Spontaneous
  Country: US (occurrence: US)
  Receive Date: 20160826
  Receipt Date: 20160826
  Transmission Date: 20161109
  Serious: Yes (Death)
  Sender: FDA-Public Use
  Company Number: US-ACTELION-A-US2016-141373

PATIENT
  Age: 53 Year
  Sex: Male

DRUGS (10)
  1. METRONIDAZOLE. [Concomitant]
     Active Substance: METRONIDAZOLE
  2. VANCOMYCIN [Concomitant]
     Active Substance: VANCOMYCIN
  3. NADOLOL. [Concomitant]
     Active Substance: NADOLOL
  4. TEMAZEPAM. [Concomitant]
     Active Substance: TEMAZEPAM
  5. METFORMIN [Concomitant]
     Active Substance: METFORMIN HYDROCHLORIDE
  6. VENTAVIS [Suspect]
     Active Substance: ILOPROST
     Indication: PULMONARY ARTERIAL HYPERTENSION
     Dosage: UNK, 6 TIMES DAILY
     Route: 055
     Dates: start: 20131212
  7. REVATIO [Concomitant]
     Active Substance: SILDENAFIL CITRATE
  8. OMEPRAZOLE. [Concomitant]
     Active Substance: OMEPRAZOLE
  9. GLIPIZIDE. [Concomitant]
     Active Substance: GLIPIZIDE
  10. CIPROFLOXACIN. [Concomitant]
     Active Substance: CIPROFLOXACIN

REACTIONS (1)
  - Myocardial infarction [Fatal]

NARRATIVE: CASE EVENT DATE: 20160719
